FAERS Safety Report 10776256 (Version 1)
Quarter: 2015Q1

REPORT INFORMATION
  Report Type: Spontaneous
  Country: SG (occurrence: SG)
  Receive Date: 20150209
  Receipt Date: 20150209
  Transmission Date: 20150721
  Serious: Yes (Other)
  Sender: FDA-Public Use
  Company Number: SG-GALDERMA-SG15000398

PATIENT
  Age: 2 Month
  Sex: Male

DRUGS (1)
  1. CLOBETASOL [Suspect]
     Active Substance: CLOBETASOL
     Indication: DERMATITIS DIAPER
     Dosage: 0.05%
     Route: 061

REACTIONS (12)
  - Cushingoid [Recovered/Resolved]
  - Hirsutism [Recovered/Resolved]
  - Cushing^s syndrome [Recovered/Resolved]
  - Weight increased [Recovered/Resolved]
  - Pericardial effusion [Recovered/Resolved]
  - Drug administered to patient of inappropriate age [Recovered/Resolved]
  - Left ventricular hypertrophy [Recovered/Resolved]
  - Hypertension [Recovered/Resolved]
  - Skin atrophy [Recovered/Resolved]
  - Product use issue [Recovered/Resolved]
  - Adrenal suppression [Recovered/Resolved]
  - Hypotonia [Recovered/Resolved]
